FAERS Safety Report 8784479 (Version 2)
Quarter: 2012Q4

REPORT INFORMATION
  Report Type: 
  Country: US (occurrence: US)
  Receive Date: 20120913
  Receipt Date: 20121003
  Transmission Date: 20130627
  Serious: Yes (Hospitalization)
  Sender: FDA-Public Use
  Company Number: US-PFIZER INC-2012223121

PATIENT
  Sex: Female

DRUGS (2)
  1. LYRICA [Suspect]
     Indication: FIBROMYALGIA
     Dosage: UNK
     Dates: start: 2010, end: 201208
  2. CELEBREX [Suspect]
     Dosage: UNK

REACTIONS (10)
  - Fibromyalgia [Unknown]
  - Arthralgia [Unknown]
  - Myalgia [Unknown]
  - Hyperhidrosis [Unknown]
  - Tachycardia [Unknown]
  - Palpitations [Unknown]
  - Diarrhoea [Unknown]
  - Abdominal discomfort [Unknown]
  - Stress [Unknown]
  - Cardiac discomfort [Unknown]
